FAERS Safety Report 6917255-1 (Version None)
Quarter: 2010Q3

REPORT INFORMATION
  Report Type: 
  Country: None (occurrence: None)
  Receive Date: 20100810
  Receipt Date: 20100805
  Transmission Date: 20110219
  Serious: Yes (Other)
  Sender: FDA-Public Use
  Company Number: JP-BAYER-201014007BYL

PATIENT
  Age: 74 Year
  Sex: Male

DRUGS (2)
  1. AVELOX [Suspect]
     Indication: INFECTION
     Dosage: TOTAL DAILY DOSE: 400 MG  UNIT DOSE: 400 MG
     Route: 048
  2. AMIODARONE HYDROCHLORIDE [Suspect]
     Dosage: UNKNOWN
     Route: 048

REACTIONS (3)
  - BRADYCARDIA [None]
  - SHOCK [None]
  - SINUS ARREST [None]
